FAERS Safety Report 20601825 (Version 3)
Quarter: 2022Q2

REPORT INFORMATION
  Report Type: Other
  Country: US (occurrence: None)
  Receive Date: 20220316
  Receipt Date: 20220624
  Transmission Date: 20220721
  Serious: Yes (Other)
  Sender: FDA-Public Use
  Company Number: US-ROCHE-3041830

PATIENT
  Age: 57 Year
  Sex: Female

DRUGS (13)
  1. OCREVUS [Suspect]
     Active Substance: OCRELIZUMAB
     Indication: Relapsing-remitting multiple sclerosis
     Dosage: SUBSEQUENT DOSE : 600 MG Q 6 MONTHS?DATE OF TREATMENT : 28/DEC/2021, 23/JUN/2021, 07/JUL/2021
     Route: 042
     Dates: start: 20210623
  2. FISH OIL [Concomitant]
     Active Substance: FISH OIL
  3. COENZYME Q10 [Concomitant]
     Active Substance: DIETARY SUPPLEMENT\UBIDECARENONE
  4. HYDROCHLOROTHIAZIDE [Concomitant]
     Active Substance: HYDROCHLOROTHIAZIDE
  5. NP THYROID [Concomitant]
     Active Substance: LEVOTHYROXINE\LIOTHYRONINE
     Dosage: EVERY OTHER DAY
  6. LISINOPRIL [Concomitant]
     Active Substance: LISINOPRIL
  7. TESTOSTERONE [Concomitant]
     Active Substance: TESTOSTERONE
  8. SEASONIQUE [Concomitant]
     Active Substance: ETHINYL ESTRADIOL\LEVONORGESTREL
     Dosage: 0.05, 0.03, 0.1 MG TABLET DAILY
  9. FLAXSEED [Concomitant]
     Active Substance: FLAX SEED
  10. CYANOCOBALAMIN [Concomitant]
     Active Substance: CYANOCOBALAMIN
     Dosage: 1000 MCG/ML SOLUTION
  11. LOPID [Concomitant]
     Active Substance: GEMFIBROZIL
  12. NEXIUM [Concomitant]
     Active Substance: ESOMEPRAZOLE MAGNESIUM
  13. TECFIDERA [Concomitant]
     Active Substance: DIMETHYL FUMARATE

REACTIONS (4)
  - Pneumonia [Recovered/Resolved]
  - Urinary tract infection [Recovered/Resolved]
  - COVID-19 [Recovered/Resolved]
  - Peripheral swelling [Recovered/Resolved]

NARRATIVE: CASE EVENT DATE: 20210707
